FAERS Safety Report 26107078 (Version 1)
Quarter: 2025Q4

REPORT INFORMATION
  Report Type: Spontaneous
  Country: KZ (occurrence: KZ)
  Receive Date: 20251201
  Receipt Date: 20251201
  Transmission Date: 20260117
  Serious: Yes (Other)
  Sender: ROCHE
  Company Number: KZ-ROCHE-10000347109

PATIENT

DRUGS (1)
  1. SATRALIZUMAB [Suspect]
     Active Substance: SATRALIZUMAB
     Indication: Neuromyelitis optica spectrum disorder
     Route: 058

REACTIONS (4)
  - Injection site pruritus [Unknown]
  - Injection site haematoma [Unknown]
  - Injection site rash [Unknown]
  - Thrombocytopenia [Unknown]
